FAERS Safety Report 21779769 (Version 1)
Quarter: 2022Q4

REPORT INFORMATION
  Report Type: Spontaneous
  Country: FR (occurrence: FR)
  Receive Date: 20221226
  Receipt Date: 20221226
  Transmission Date: 20230113
  Serious: Yes (Hospitalization)
  Sender: FDA-Public Use
  Company Number: None

PATIENT
  Age: 70 Year
  Sex: Male
  Weight: 106 kg

DRUGS (5)
  1. KEYTRUDA [Suspect]
     Active Substance: PEMBROLIZUMAB
     Indication: Nodular melanoma
     Dosage: 400 MILLIGRAM, EVERY 6 WEEKS
     Route: 042
     Dates: start: 20220909, end: 20220909
  2. CASPOFUNGIN ACETATE [Suspect]
     Active Substance: CASPOFUNGIN ACETATE
     Dosage: 140 MILLIGRAM, QD
     Route: 042
     Dates: start: 20221118, end: 20221122
  3. CEFOTAXIME [Suspect]
     Active Substance: CEFOTAXIME SODIUM
     Indication: Endocarditis
     Dosage: INCREASE TO 9G/D ON 03-NOV-2022 THEN TO 15G/D ON 17-NOV-2022
     Route: 042
     Dates: start: 20221101, end: 20221124
  4. CLINDAMYCIN [Concomitant]
     Active Substance: CLINDAMYCIN
     Indication: Arthritis infective
     Route: 042
     Dates: start: 20221113
  5. MEROPENEM [Concomitant]
     Active Substance: MEROPENEM
     Indication: Endocarditis
     Route: 042
     Dates: start: 20221118

REACTIONS (1)
  - Neutropenia [Recovering/Resolving]

NARRATIVE: CASE EVENT DATE: 20221101
